FAERS Safety Report 12551232 (Version 2)
Quarter: 2016Q3

REPORT INFORMATION
  Report Type: Spontaneous
  Country: US (occurrence: US)
  Receive Date: 20160713
  Receipt Date: 20160716
  Transmission Date: 20161109
  Serious: Yes (Hospitalization, Other)
  Sender: FDA-Public Use
  Company Number: US-ABBVIE-16K-163-1669998-00

PATIENT

DRUGS (1)
  1. HUMIRA [Suspect]
     Active Substance: ADALIMUMAB
     Indication: CROHN^S DISEASE
     Dosage: LOADING DOSE (4 SHOTS)
     Route: 058

REACTIONS (10)
  - Hypophagia [Unknown]
  - Diabetes mellitus [Unknown]
  - Weight decreased [Recovering/Resolving]
  - Colitis ulcerative [Unknown]
  - Pharyngeal oedema [Unknown]
  - Swollen tongue [Unknown]
  - Sepsis [Unknown]
  - Chills [Unknown]
  - General physical health deterioration [Unknown]
  - Pyrexia [Unknown]
